FAERS Safety Report 4488106-2 (Version None)
Quarter: 2004Q4

REPORT INFORMATION
  Report Type: 
  Country: None (occurrence: None)
  Receive Date: 20041022
  Receipt Date: 20040730
  Transmission Date: 20050328
  Serious: Yes (Hospitalization, Other)
  Sender: FDA-Public Use
  Company Number: ESWYE117218OCT04

PATIENT
  Age: 17 Year
  Sex: Female

DRUGS (8)
  1. TAZOCEL (PIPERACILLIN/ TAZOBACTAM, INJECTION) [Suspect]
     Indication: ABDOMINAL ABSCESS
     Dosage: 4.5 G 1X PER 8 HR
     Route: 042
     Dates: start: 20040509, end: 20040521
  2. NOLOTIL /SPA/  (METAMIZOLE MAGNESIUM) [Concomitant]
  3. FLAGIL (METRONIDAZOLE) [Concomitant]
  4. GENTAMICIN [Concomitant]
  5. RANITIDINE [Concomitant]
  6. ACETAMINOPHEN [Concomitant]
  7. SALT SOLUTION (SALT SOLUTIONS) [Concomitant]
  8. UNSPECIFIED NUTRITIONAL SUPPLEMENT (UNSPECIFIED NUTRITIONAL SUPPLEMENT [Concomitant]

REACTIONS (7)
  - BLOOD ALKALINE PHOSPHATASE INCREASED [None]
  - BLOOD TRIGLYCERIDES INCREASED [None]
  - GAMMA-GLUTAMYLTRANSFERASE INCREASED [None]
  - LYMPHADENOPATHY [None]
  - PYREXIA [None]
  - TOXIC SKIN ERUPTION [None]
  - WHITE BLOOD CELL COUNT INCREASED [None]
